FAERS Safety Report 10134147 (Version 2)
Quarter: 2014Q3

REPORT INFORMATION
  Report Type: Spontaneous
  Country: KR (occurrence: KR)
  Receive Date: 20140428
  Receipt Date: 20140731
  Transmission Date: 20150326
  Serious: Yes (Hospitalization)
  Sender: FDA-Public Use
  Company Number: KR-B.I. PHARMACEUTICALS,INC./RIDGEFIELD-2014-BI-18706YA

PATIENT
  Age: 67 Year
  Sex: Male
  Weight: 62 kg

DRUGS (42)
  1. TARIVID [Concomitant]
     Active Substance: OFLOXACIN
     Route: 065
  2. UNKNOWNDRUG (H/S) [Concomitant]
     Dosage: FORMULATION: INJECTION
     Route: 065
     Dates: start: 20131213, end: 20131213
  3. PATADAY [Concomitant]
     Active Substance: OLOPATADINE HYDROCHLORIDE
     Route: 065
     Dates: start: 20130109, end: 20130116
  4. CEFOTETAN [Concomitant]
     Active Substance: CEFOTETAN DISODIUM
     Dosage: FORMULATION: INJECTION
     Route: 065
     Dates: start: 20131213, end: 20131213
  5. PYRIDOSTIGMINE [Concomitant]
     Active Substance: PYRIDOSTIGMINE
     Dosage: FORMULATION: INJECTION
     Route: 065
     Dates: start: 20131213, end: 20131213
  6. ROCARON [Concomitant]
     Dosage: FORMULATION: INJECTION
     Route: 065
     Dates: start: 20131213, end: 20131213
  7. TRANOPHEN [Concomitant]
     Route: 048
     Dates: start: 20131214, end: 20131220
  8. PETHIDINE [Concomitant]
     Active Substance: MEPERIDINE
     Dosage: FORMULATION: INHALATION VAPOUR
     Route: 055
     Dates: start: 20131231, end: 20131231
  9. CAVIT [Concomitant]
     Route: 065
     Dates: start: 20130109
  10. ULGUT [Concomitant]
     Route: 048
     Dates: start: 20130205, end: 20130208
  11. STILLEN [Concomitant]
     Route: 048
     Dates: start: 20130415, end: 20130702
  12. GLYCOPYRROLATE. [Concomitant]
     Active Substance: GLYCOPYRROLATE
     Dosage: FORMULATION: INJECTION
     Route: 065
     Dates: start: 20131213, end: 20131213
  13. DIAZEPAM. [Concomitant]
     Active Substance: DIAZEPAM
     Route: 048
     Dates: start: 20131212, end: 20131212
  14. UNKNOWNDRUG (GREENPLAST-Q) [Concomitant]
     Route: 048
     Dates: start: 20131213, end: 20131213
  15. MIDAZOLAM [Concomitant]
     Active Substance: MIDAZOLAM\MIDAZOLAM HYDROCHLORIDE
     Dosage: FORMULATION: INJECTION
     Route: 065
     Dates: start: 20131231, end: 20131231
  16. TROMBOJECT [Concomitant]
     Dosage: FORMULATION: INJECTION
     Route: 065
     Dates: start: 20140404, end: 20140404
  17. BAYPRESS [Concomitant]
     Active Substance: NITRENDIPINE
     Route: 048
     Dates: start: 20120922, end: 20121116
  18. SERONASE [Concomitant]
     Route: 065
     Dates: start: 20130205, end: 20130208
  19. EPHEDRINE [Concomitant]
     Active Substance: EPHEDRINE
     Dosage: FORMULATION: INJECTION
     Route: 065
     Dates: start: 20131213, end: 20131213
  20. KEROMIN [Concomitant]
     Route: 065
     Dates: start: 20131213, end: 20131213
  21. MAGMIL [Concomitant]
     Active Substance: MAGNESIUM HYDROXIDE
     Route: 048
     Dates: start: 20131214, end: 20131220
  22. GASMOTIN [Concomitant]
     Active Substance: MOSAPRIDE CITRATE
     Route: 048
     Dates: start: 20131214, end: 20131220
  23. UNKNOWNDRUG (H/S) [Concomitant]
     Dosage: FORMULATION: INJECTION
     Route: 065
     Dates: start: 20131231, end: 20131231
  24. TAMSULOSINA [Suspect]
     Active Substance: TAMSULOSIN HYDROCHLORIDE
     Indication: PRODUCT USED FOR UNKNOWN INDICATION
     Dosage: 0.2 MG
     Route: 048
     Dates: start: 20120803
  25. FENTANYL. [Concomitant]
     Active Substance: FENTANYL
     Dosage: FORMULATION: INJECTION
     Route: 065
     Dates: start: 20131213, end: 20131213
  26. MAGMIL [Concomitant]
     Active Substance: MAGNESIUM HYDROXIDE
     Route: 048
     Dates: start: 20131213, end: 20131213
  27. UNKNOWNDRUG (TROPHERINE) [Concomitant]
     Route: 065
     Dates: start: 20121015, end: 20130108
  28. UNKNOWNDRUG (MOTILITONE) [Concomitant]
     Route: 048
     Dates: start: 20130415, end: 20130702
  29. CIALIS [Concomitant]
     Active Substance: TADALAFIL
     Route: 048
     Dates: start: 20130712, end: 20130715
  30. ANEPOL [Concomitant]
     Dosage: FORMULATION:
     Route: 065
     Dates: start: 20131213, end: 20131213
  31. STILLEN [Concomitant]
     Route: 048
     Dates: start: 20131213, end: 20131213
  32. FLAREX [Concomitant]
     Active Substance: FLUOROMETHOLONE ACETATE
     Route: 065
     Dates: start: 20130117
  33. GASMOTIN [Concomitant]
     Active Substance: MOSAPRIDE CITRATE
     Route: 048
     Dates: start: 20131213, end: 20131213
  34. NORVASC [Concomitant]
     Active Substance: AMLODIPINE BESYLATE
     Route: 048
     Dates: start: 20130107, end: 20130407
  35. CAVIT [Concomitant]
     Route: 065
  36. TARIVID [Concomitant]
     Active Substance: OFLOXACIN
     Route: 065
     Dates: start: 20130117
  37. FLOMOX [Concomitant]
     Active Substance: CEFCAPENE PIVOXIL HYDROCHLORIDE HYDRATE
     Route: 065
     Dates: start: 20130205, end: 20130208
  38. NOLTEC [Concomitant]
     Route: 048
     Dates: start: 20130415, end: 20130702
  39. NORMIX [Concomitant]
     Active Substance: RIFAXIMIN
     Route: 065
     Dates: start: 20130502, end: 20130508
  40. TAGEN-F [Concomitant]
     Route: 048
     Dates: start: 20130527, end: 20130827
  41. TRANOPHEN [Concomitant]
     Route: 048
     Dates: start: 20131213, end: 20131213
  42. STILLEN [Concomitant]
     Route: 048
     Dates: start: 20131214, end: 20131220

REACTIONS (4)
  - Inguinal hernia [Recovered/Resolved]
  - Ear pain [Recovered/Resolved]
  - Oesophagitis [Recovered/Resolved]
  - Varicose vein [Recovered/Resolved]

NARRATIVE: CASE EVENT DATE: 20130415
